FAERS Safety Report 9793182 (Version 4)
Quarter: 2014Q4

REPORT INFORMATION
  Report Type: Spontaneous
  Country: JP (occurrence: JP)
  Receive Date: 20140102
  Receipt Date: 20141008
  Transmission Date: 20150529
  Serious: Yes (Hospitalization)
  Sender: FDA-Public Use
  Company Number: JP-BRISTOL-MYERS SQUIBB COMPANY-19950724

PATIENT
  Age: 76 Year
  Sex: Male
  Weight: 57 kg

DRUGS (10)
  1. WARFARIN [Concomitant]
     Active Substance: WARFARIN
     Route: 048
  2. SENNA [Concomitant]
     Active Substance: SENNA LEAF\SENNOSIDES\SENNOSIDES A AND B
     Route: 048
  3. TRAMCET [Concomitant]
     Active Substance: ACETAMINOPHEN\TRAMADOL
     Route: 048
  4. EXFORGE [Concomitant]
     Active Substance: AMLODIPINE BESYLATE\VALSARTAN
     Route: 048
  5. ERBITUX [Suspect]
     Active Substance: CETUXIMAB
     Indication: HYPOPHARYNGEAL CANCER
     Dosage: 12SEP2013?30JUL13-30JUL13?06AUG13-09SEP13 250MG/M2?06AUG13-03SEP13 250MG/M2
     Route: 041
     Dates: start: 20130730, end: 20130903
  6. ALLOPURINOL. [Concomitant]
     Active Substance: ALLOPURINOL
     Route: 048
  7. REBAMIPIDE [Concomitant]
     Active Substance: REBAMIPIDE
     Route: 048
  8. MOHRUS [Concomitant]
     Active Substance: KETOPROFEN
     Dosage: TAPE
     Route: 062
  9. AMLODIPINE BESYLATE. [Concomitant]
     Active Substance: AMLODIPINE BESYLATE
  10. TAKEPRON [Concomitant]
     Active Substance: LANSOPRAZOLE
     Route: 065

REACTIONS (2)
  - Pneumonia aspiration [Recovering/Resolving]
  - Pharyngeal inflammation [Recovered/Resolved]

NARRATIVE: CASE EVENT DATE: 20130820
